FAERS Safety Report 8923364 (Version 1)
Quarter: 2012Q4

REPORT INFORMATION
  Report Type: 
  Country: AR (occurrence: AR)
  Receive Date: 20121123
  Receipt Date: 20121123
  Transmission Date: 20130627
  Serious: Yes (Other)
  Sender: FDA-Public Use
  Company Number: PHHY2012AR106338

PATIENT
  Sex: Male

DRUGS (1)
  1. DIOVAN [Suspect]
     Indication: CARDIAC DISORDER
     Dosage: 160 mg, daily
     Route: 048
     Dates: start: 201109, end: 201210

REACTIONS (1)
  - Arterial occlusive disease [Not Recovered/Not Resolved]
